FAERS Safety Report 9076634 (Version 1)
Quarter: 2013Q1

REPORT INFORMATION
  Report Type: Report from Study
  Country: US (occurrence: US)
  Receive Date: 20130129
  Receipt Date: 20130129
  Transmission Date: 20140127
  Serious: No
  Sender: FDA-Public Use
  Company Number: US-ABBOTT-12P-163-0938752-00

PATIENT
  Age: 58 Year
  Sex: Female

DRUGS (4)
  1. HUMIRA 40 MG/0.8 ML PEN [Suspect]
     Indication: RHEUMATOID ARTHRITIS
     Dosage: ONE PEN
     Dates: start: 201105
  2. UNKNOWN BLOOD PRESSURE MEDICATION [Concomitant]
     Indication: BLOOD PRESSURE
  3. UNKNOWN HYPERTHYROID MEDICATION [Concomitant]
     Indication: HYPERTHYROIDISM
  4. UNKNOWN HIGH CHOLESTEROL MEDICATION [Concomitant]
     Indication: BLOOD CHOLESTEROL INCREASED

REACTIONS (5)
  - Cough [Not Recovered/Not Resolved]
  - Bronchitis [Not Recovered/Not Resolved]
  - Oropharyngeal pain [Not Recovered/Not Resolved]
  - Aphonia [Not Recovered/Not Resolved]
  - Chest discomfort [Not Recovered/Not Resolved]
